FAERS Safety Report 19712050 (Version 1)
Quarter: 2021Q3

REPORT INFORMATION
  Report Type: Spontaneous
  Country: US (occurrence: US)
  Receive Date: 20210817
  Receipt Date: 20210817
  Transmission Date: 20211014
  Serious: Yes (Other)
  Sender: FDA-Public Use
  Company Number: US-SUNOVION-2021SUN003004

PATIENT
  Age: 64 Year
  Sex: Female

DRUGS (1)
  1. BROVANA [Suspect]
     Active Substance: ARFORMOTEROL TARTRATE
     Dosage: 15 MCG, 2 ML, BID
     Route: 055

REACTIONS (1)
  - Lung volume reduction surgery [Unknown]
